FAERS Safety Report 13375269 (Version 3)
Quarter: 2017Q2

REPORT INFORMATION
  Report Type: Spontaneous
  Country: US (occurrence: US)
  Receive Date: 20170327
  Receipt Date: 20170626
  Transmission Date: 20170830
  Serious: No
  Sender: FDA-Public Use
  Company Number: US-CLOVIS ONCOLOGY-CLO-2017-000122

PATIENT
  Age: 65 Year
  Sex: Female

DRUGS (5)
  1. RUBRACA [Suspect]
     Active Substance: RUCAPARIB CAMSYLATE
     Indication: OVARIAN CANCER
     Dosage: 600 MG, BID
     Route: 048
     Dates: start: 20170228
  2. RUBRACA [Suspect]
     Active Substance: RUCAPARIB CAMSYLATE
     Dosage: 600 MG, BID
     Route: 048
     Dates: start: 20170303, end: 20170317
  3. RUBRACA [Suspect]
     Active Substance: RUCAPARIB CAMSYLATE
     Dosage: 600 UNK, UNK
     Route: 048
     Dates: start: 201703
  4. RUBRACA [Suspect]
     Active Substance: RUCAPARIB CAMSYLATE
     Dosage: 600 MG, BID
     Route: 048
     Dates: start: 201703
  5. RUBRACA [Suspect]
     Active Substance: RUCAPARIB CAMSYLATE
     Dosage: 300 MG, QD
     Dates: end: 2017

REACTIONS (7)
  - Nervousness [Not Recovered/Not Resolved]
  - Nausea [Not Recovered/Not Resolved]
  - Adverse event [Unknown]
  - Abdominal pain upper [Recovered/Resolved]
  - Vomiting [Recovered/Resolved]
  - Prescribed underdose [Unknown]
  - Therapy cessation [Recovered/Resolved]

NARRATIVE: CASE EVENT DATE: 2017
